FAERS Safety Report 9717889 (Version 1)
Quarter: 2013Q4

REPORT INFORMATION
  Report Type: Spontaneous
  Country: US (occurrence: US)
  Receive Date: 20131125
  Receipt Date: 20131125
  Transmission Date: 20140711
  Serious: No
  Sender: FDA-Public Use
  Company Number: US-VIVUS-2013V1000355

PATIENT
  Sex: Female

DRUGS (10)
  1. QSYMIA 7.5MG/46MG [Suspect]
     Indication: WEIGHT DECREASED
     Route: 048
  2. QSYMIA 3.75MG/23MG [Suspect]
     Indication: WEIGHT DECREASED
     Route: 048
  3. QSYMIA 3.75MG/23MG [Suspect]
     Dosage: DAILY DOSE: 1 CAPSULE,
     Route: 048
  4. QSYMIA 3.75MG/23MG [Suspect]
     Dosage: DAILY DOSE: 1 CAPSULE,
     Route: 048
     Dates: start: 20130502
  5. SYNTHROID [Concomitant]
     Indication: HYPOTHYROIDISM
     Route: 048
  6. PREMARIN [Concomitant]
     Indication: HORMONE REPLACEMENT THERAPY
     Route: 048
  7. NIACIN [Concomitant]
     Indication: LIPIDS DECREASED
     Route: 048
  8. NIACIN [Concomitant]
     Indication: BLOOD TRIGLYCERIDES DECREASED
  9. VITAMIN D [Concomitant]
     Indication: MEDICAL DIET
     Route: 048
  10. CALTRATE [Concomitant]
     Indication: MEDICAL DIET
     Route: 048

REACTIONS (5)
  - Salivary gland enlargement [Recovered/Resolved]
  - Laryngeal pain [Recovered/Resolved]
  - Paraesthesia [Recovered/Resolved]
  - Dizziness [Recovered/Resolved]
  - Dysgeusia [Recovered/Resolved]
